FAERS Safety Report 9416965 (Version 2)
Quarter: 2013Q3

REPORT INFORMATION
  Report Type: Spontaneous
  Country: US (occurrence: US)
  Receive Date: 20130724
  Receipt Date: 20130815
  Transmission Date: 20140515
  Serious: Yes (Other)
  Sender: FDA-Public Use
  Company Number: US-TEVA-420877USA

PATIENT
  Age: 42 Year
  Sex: Female
  Weight: 77.18 kg

DRUGS (3)
  1. PARAGARD 380A [Suspect]
     Indication: CONTRACEPTION
     Route: 015
     Dates: start: 20130610, end: 20130712
  2. WELLBUTRIN [Concomitant]
     Indication: DEPRESSION
  3. EFFEXOR [Concomitant]
     Indication: DEPRESSION

REACTIONS (4)
  - Device dislocation [Recovered/Resolved]
  - Abdominal pain [Recovered/Resolved]
  - Metrorrhagia [Recovered/Resolved]
  - Device expulsion [Recovered/Resolved]
